FAERS Safety Report 9729114 (Version 2)
Quarter: 2013Q4

REPORT INFORMATION
  Report Type: Spontaneous
  Country: FR (occurrence: FR)
  Receive Date: 20131204
  Receipt Date: 20131216
  Transmission Date: 20140711
  Serious: Yes (Hospitalization)
  Sender: FDA-Public Use
  Company Number: FR-JNJFOC-20131200493

PATIENT
  Age: 67 Year
  Sex: Male

DRUGS (14)
  1. XARELTO [Suspect]
     Indication: CEREBROVASCULAR ACCIDENT PROPHYLAXIS
     Route: 048
  2. XARELTO [Suspect]
     Indication: CEREBROVASCULAR ACCIDENT PROPHYLAXIS
     Route: 048
     Dates: end: 20131109
  3. XARELTO [Suspect]
     Indication: ATRIAL FIBRILLATION
     Route: 048
     Dates: end: 20131109
  4. XARELTO [Suspect]
     Indication: ATRIAL FIBRILLATION
     Route: 048
  5. HALDOL [Concomitant]
     Dosage: 100 DROPS/DAY
     Route: 065
  6. TERCIAN [Concomitant]
     Dosage: 60 DROPS/DAY
     Route: 065
  7. TAMSULOSIN [Concomitant]
     Route: 065
  8. SERESTA [Concomitant]
     Route: 065
  9. VENLAFAXINE [Concomitant]
     Route: 065
  10. BISOPROLOL [Concomitant]
     Route: 065
  11. LOXEN [Concomitant]
     Route: 065
  12. NOCTAMIDE [Concomitant]
     Route: 065
  13. THERALENE [Concomitant]
     Route: 065
  14. LEPTICUR [Concomitant]
     Route: 065

REACTIONS (2)
  - Hypovolaemic shock [Recovering/Resolving]
  - Gastrointestinal haemorrhage [Recovering/Resolving]
